FAERS Safety Report 5000294-8 (Version None)
Quarter: 2006Q2

REPORT INFORMATION
  Report Type: 
  Country: None (occurrence: None)
  Receive Date: 20060511
  Receipt Date: 20050330
  Transmission Date: 20061013
  Serious: Yes (Disabling, Other)
  Sender: FDA-Public Use
  Company Number: US-MERCK-0503USA05263

PATIENT
  Age: 40 Year
  Sex: Male
  Weight: 91 kg

DRUGS (8)
  1. ASPIRIN [Concomitant]
     Indication: PAIN
     Route: 065
     Dates: start: 20030101
  2. ASPIRIN [Concomitant]
     Route: 065
     Dates: start: 20030101
  3. NAPROXEN [Concomitant]
     Indication: PAIN
     Route: 065
     Dates: start: 20020101, end: 20021001
  4. IBUPROFEN [Concomitant]
     Indication: PAIN
     Route: 065
     Dates: start: 20010101, end: 20030101
  5. VIOXX [Suspect]
     Indication: PAIN
     Route: 048
     Dates: start: 20030101, end: 20041001
  6. VIOXX [Suspect]
     Indication: ARTHRITIS
     Route: 048
     Dates: start: 20030101, end: 20041001
  7. FAMOTIDINE [Concomitant]
     Route: 065
  8. ATENOLOL [Concomitant]
     Route: 065

REACTIONS (8)
  - CEREBROVASCULAR ACCIDENT [None]
  - CHEST PAIN [None]
  - CORONARY ARTERY DISEASE [None]
  - HEADACHE [None]
  - HYPOAESTHESIA [None]
  - JOINT SWELLING [None]
  - MYOCARDIAL INFARCTION [None]
  - SHOCK [None]
